FAERS Safety Report 8592871-2 (Version None)
Quarter: 2012Q3

REPORT INFORMATION
  Report Type: 
  Country: None (occurrence: None)
  Receive Date: 20120814
  Receipt Date: 20120801
  Transmission Date: 20120928
  Serious: Yes (Death, Life-Threatening)
  Sender: FDA-Public Use
  Company Number: US-ROCHE-1078465

PATIENT
  Sex: Female
  Weight: 68.1 kg

DRUGS (3)
  1. ALIMTA [Concomitant]
     Indication: LUNG NEOPLASM MALIGNANT
     Route: 042
     Dates: start: 20120320, end: 20120410
  2. CISPLATIN [Concomitant]
     Indication: LUNG NEOPLASM MALIGNANT
     Dates: start: 20120320, end: 20120410
  3. AVASTIN [Suspect]
     Indication: LUNG NEOPLASM MALIGNANT
     Route: 042
     Dates: start: 20120320

REACTIONS (3)
  - LOWER GASTROINTESTINAL HAEMORRHAGE [None]
  - LUNG NEOPLASM MALIGNANT [None]
  - CARDIAC ARREST [None]
